FAERS Safety Report 5367364-6 (Version None)
Quarter: 2007Q2

REPORT INFORMATION
  Report Type: 
  Country: None (occurrence: None)
  Receive Date: 20070622
  Receipt Date: 20060622
  Transmission Date: 20071010
  Serious: No
  Sender: FDA-Public Use
  Company Number: US-ASTRAZENECA-2006UW13309

PATIENT
  Sex: Female

DRUGS (1)
  1. PULMICORT RESPULES [Suspect]
     Indication: POSTNASAL DRIP
     Route: 055

REACTIONS (3)
  - BREATH ODOUR [None]
  - DYSGEUSIA [None]
  - INTENTIONAL DRUG MISUSE [None]
